FAERS Safety Report 7756198-0 (Version None)
Quarter: 2011Q3

REPORT INFORMATION
  Report Type: 
  Country: None (occurrence: None)
  Receive Date: 20110916
  Receipt Date: 20110908
  Transmission Date: 20111222
  Serious: Yes (Death, Hospitalization)
  Sender: FDA-Public Use
  Company Number: GB-JNJFOC-20110904129

PATIENT
  Age: 55 Year
  Sex: Male

DRUGS (11)
  1. IBUPROFEN [Suspect]
     Indication: PAIN
  2. DIAZEPAM [Concomitant]
  3. VALPROATE SODIUM [Concomitant]
  4. LACTULOSE [Concomitant]
  5. OMEPRAZOLE [Concomitant]
     Indication: GASTRITIS
  6. CHLORPROMAZINE [Concomitant]
  7. CLOZAPINE [Suspect]
     Indication: SCHIZOPHRENIA
     Route: 048
     Dates: start: 20081211, end: 20110807
  8. SIMVASTATIN [Concomitant]
  9. VITAMIN B [Concomitant]
  10. CITALOPRAM HYDROBROMIDE [Concomitant]
  11. PROCYCLIDINE HYDROCHLORIDE 2MG TAB [Concomitant]

REACTIONS (10)
  - PNEUMONIA ASPIRATION [None]
  - WHITE BLOOD CELL COUNT INCREASED [None]
  - COUGH [None]
  - MALIGNANT MELANOMA [None]
  - MONOCYTE COUNT INCREASED [None]
  - HAEMOPTYSIS [None]
  - NEUTROPHIL COUNT INCREASED [None]
  - GENERAL PHYSICAL HEALTH DETERIORATION [None]
  - METASTASES TO CENTRAL NERVOUS SYSTEM [None]
  - OTORRHOEA [None]
